FAERS Safety Report 6671145 (Version 3)
Quarter: 2015Q2

REPORT INFORMATION
  Report Type: Spontaneous
  Country: GB (occurrence: GB)
  Receive Date: 20080618
  Receipt Date: 20150604
  Transmission Date: 20150821
  Serious: Yes (Hospitalization)
  Sender: FDA-Public Use
  Company Number: PHHY2008GB10632

PATIENT
  Age: 74 Year
  Sex: Male

DRUGS (3)
  1. GLIVEC [Suspect]
     Active Substance: IMATINIB MESYLATE
     Indication: CHRONIC MYELOID LEUKAEMIA
     Dosage: 400 MG, QD
     Route: 065
     Dates: start: 20050915
  2. HYDROXYUREA. [Suspect]
     Active Substance: HYDROXYUREA
     Indication: PRODUCT USED FOR UNKNOWN INDICATION
     Dosage: UNK
     Route: 065
     Dates: start: 20040914, end: 20041223
  3. HYDROXYUREA. [Suspect]
     Active Substance: HYDROXYUREA
     Dosage: UNK
     Route: 065
     Dates: start: 20050413, end: 20050915

REACTIONS (1)
  - Ankle fracture [Recovered/Resolved]

NARRATIVE: CASE EVENT DATE: 20070220
